FAERS Safety Report 19510465 (Version 3)
Quarter: 2021Q3

REPORT INFORMATION
  Report Type: Spontaneous
  Country: US (occurrence: US)
  Receive Date: 20210708
  Receipt Date: 20210819
  Transmission Date: 20211014
  Serious: Yes (Other)
  Sender: FDA-Public Use
  Company Number: US-BEH-2021133587

PATIENT
  Age: 74 Year
  Sex: Female

DRUGS (6)
  1. BERINERT [Suspect]
     Active Substance: HUMAN C1-ESTERASE INHIBITOR
     Indication: PROPHYLAXIS
     Dosage: 2000 INTERNATIONAL UNIT, QD
     Route: 042
     Dates: start: 20120312
  2. BERINERT [Suspect]
     Active Substance: HUMAN C1-ESTERASE INHIBITOR
     Dosage: 2000 INTERNATIONAL UNIT, QD
     Route: 042
     Dates: start: 20200620
  3. BERINERT [Suspect]
     Active Substance: HUMAN C1-ESTERASE INHIBITOR
     Indication: HEREDITARY ANGIOEDEMA
     Dosage: 2000 INTERNATIONAL UNIT, QD
     Route: 042
     Dates: start: 202006
  4. BERINERT [Suspect]
     Active Substance: HUMAN C1-ESTERASE INHIBITOR
     Indication: HEREDITARY ANGIOEDEMA
     Dosage: 2000 INTERNATIONAL UNIT, QD
     Route: 042
     Dates: start: 202006
  5. BERINERT [Suspect]
     Active Substance: HUMAN C1-ESTERASE INHIBITOR
     Indication: PROPHYLAXIS
     Dosage: 2000 INTERNATIONAL UNIT, QD
     Route: 042
     Dates: start: 20120312
  6. BERINERT [Suspect]
     Active Substance: HUMAN C1-ESTERASE INHIBITOR
     Dosage: 2000 INTERNATIONAL UNIT, QD
     Route: 042
     Dates: start: 20200620

REACTIONS (9)
  - Off label use [Unknown]
  - Hereditary angioedema [Recovered/Resolved]
  - Fall [Unknown]
  - No adverse event [Unknown]
  - Fractured sacrum [Unknown]
  - Hereditary angioedema [Recovered/Resolved]
  - Hereditary angioedema [Recovered/Resolved]
  - Hereditary angioedema [Recovered/Resolved]
  - Hereditary angioedema [Unknown]

NARRATIVE: CASE EVENT DATE: 20210715
